FAERS Safety Report 15050365 (Version 1)
Quarter: 2018Q2

REPORT INFORMATION
  Report Type: Report from Study
  Country: DE (occurrence: DE)
  Receive Date: 20180622
  Receipt Date: 20180622
  Transmission Date: 20180711
  Serious: Yes (Other)
  Sender: FDA-Public Use
  Company Number: DE-SA-2016SA030605

PATIENT
  Age: 35 Year
  Sex: Female
  Weight: 52 kg

DRUGS (15)
  1. ALEMTUZUMAB [Suspect]
     Active Substance: ALEMTUZUMAB
     Indication: MULTIPLE SCLEROSIS
     Dosage: 12 MG,UNK
     Route: 041
     Dates: start: 20150209, end: 20150213
  2. CARBIMAZOLE [Suspect]
     Active Substance: CARBIMAZOLE
     Indication: HYPERTHYROIDISM
     Dosage: 10 MG,UNK
     Route: 048
     Dates: start: 20160913, end: 20161014
  3. ACICLOVIR [Concomitant]
     Active Substance: ACYCLOVIR
     Dosage: 400 MG,UNK
     Route: 048
     Dates: start: 20160202, end: 20160302
  4. FAMPYRA [Concomitant]
     Active Substance: DALFAMPRIDINE
     Indication: GAIT DISTURBANCE
     Dosage: 10 MG,BID
     Route: 048
  5. DRONABINOL. [Concomitant]
     Active Substance: DRONABINOL
     Dosage: 12 DF, QID
     Route: 065
  6. PARACETAMOL [Concomitant]
     Active Substance: ACETAMINOPHEN
     Indication: PREMEDICATION
     Dosage: 500 MG,UNK
     Route: 048
     Dates: start: 20160202, end: 20160204
  7. DOXEPIN [Concomitant]
     Active Substance: DOXEPIN
     Dosage: 20 MG, UNK
     Route: 065
  8. BACLOFEN. [Concomitant]
     Active Substance: BACLOFEN
     Indication: MUSCLE SPASTICITY
     Dosage: 25 MG,QD
     Route: 048
  9. ALEMTUZUMAB [Suspect]
     Active Substance: ALEMTUZUMAB
     Dosage: 12 MG,UNK
     Route: 041
     Dates: start: 20160202, end: 20160204
  10. RANITIDINE. [Concomitant]
     Active Substance: RANITIDINE
     Indication: PREMEDICATION
     Dosage: 300 MG,UNK
     Route: 048
     Dates: start: 20160202
  11. TOVIAZ [Concomitant]
     Active Substance: FESOTERODINE FUMARATE
     Indication: BLADDER DISORDER
     Dosage: 4 MG,QD
     Route: 048
  12. CETERICIN [Concomitant]
     Dosage: 10 MG, UNK
     Route: 065
  13. CETIRIZINE [Concomitant]
     Active Substance: CETIRIZINE HYDROCHLORIDE
     Indication: PREMEDICATION
     Dosage: 10 MG,UNK
     Route: 048
     Dates: start: 20160202, end: 20160210
  14. L-THYROXINE [LEVOTHYROXINE] [Concomitant]
     Dosage: 100 UG, UNK
     Route: 065
     Dates: start: 20161014
  15. TOVIAZ [Concomitant]
     Active Substance: FESOTERODINE FUMARATE
     Indication: URGE INCONTINENCE

REACTIONS (5)
  - Hypothyroidism [Unknown]
  - Urinary tract infection [Unknown]
  - Thrombocytopenia [Unknown]
  - Hyperthyroidism [Not Recovered/Not Resolved]
  - Herpes zoster [Not Recovered/Not Resolved]

NARRATIVE: CASE EVENT DATE: 20160204
